FAERS Safety Report 9511365 (Version 1)
Quarter: 2013Q3

REPORT INFORMATION
  Report Type: Spontaneous
  Country: US (occurrence: None)
  Receive Date: 20130909
  Receipt Date: 20130909
  Transmission Date: 20140515
  Serious: Yes (Disabling)
  Sender: FDA-Public Use
  Company Number: None

PATIENT
  Age: 67 Year
  Sex: Female
  Weight: 57.61 kg

DRUGS (6)
  1. CIPROFLOXACN 250 MG [Suspect]
     Indication: URINARY TRACT INFECTION
     Route: 048
  2. ARMOR THYROID [Concomitant]
  3. MULTIVITAMINS [Concomitant]
  4. ALPHA LIPOIC ACID [Concomitant]
  5. TUMERIC [Concomitant]
  6. MILK THISTLE [Concomitant]

REACTIONS (4)
  - Hypoaesthesia [None]
  - Hypoaesthesia [None]
  - Gait disturbance [None]
  - Muscular weakness [None]
